FAERS Safety Report 15762304 (Version 2)
Quarter: 2019Q1

REPORT INFORMATION
  Report Type: Spontaneous
  Country: PT (occurrence: PT)
  Receive Date: 20181226
  Receipt Date: 20190111
  Transmission Date: 20190417
  Serious: Yes (Other)
  Sender: FDA-Public Use
  Company Number: PT-PFIZER INC-2011055847

PATIENT
  Age: 83 Year
  Sex: Male

DRUGS (10)
  1. THEOPHYLLINE [Concomitant]
     Active Substance: THEOPHYLLINE ANHYDROUS
  2. METOLAZONE. [Concomitant]
     Active Substance: METOLAZONE
  3. CANDESARTAN. [Concomitant]
     Active Substance: CANDESARTAN
  4. SITAGLIPTIN [Concomitant]
     Active Substance: SITAGLIPTIN
  5. FUROSEMIDE. [Concomitant]
     Active Substance: FUROSEMIDE
  6. WARFARIN [Concomitant]
     Active Substance: WARFARIN
  7. SPIRONOLACTONE. [Concomitant]
     Active Substance: SPIRONOLACTONE
  8. PRAVASTATIN. [Concomitant]
     Active Substance: PRAVASTATIN
  9. LEVOFLOXACIN. [Suspect]
     Active Substance: LEVOFLOXACIN
     Indication: URINARY TRACT INFECTION
     Dosage: 500 MG, 1X/DAY
  10. GLIPIZIDE. [Concomitant]
     Active Substance: GLIPIZIDE

REACTIONS (1)
  - Acute psychosis [Recovered/Resolved]
